FAERS Safety Report 15293795 (Version 1)
Quarter: 2018Q3

REPORT INFORMATION
  Report Type: Spontaneous
  Country: US (occurrence: US)
  Receive Date: 20180807
  Receipt Date: 20180807
  Transmission Date: 20181010
  Serious: No
  Sender: FDA-Public Use
  Company Number: None

PATIENT
  Age: 53 Year
  Sex: Male

DRUGS (16)
  1. ALLOPURINOL. [Concomitant]
     Active Substance: ALLOPURINOL
  2. MULTI VITAMIN [Concomitant]
     Active Substance: VITAMINS
  3. TRIAMCINOLON [Concomitant]
  4. LISINOPRIL. [Concomitant]
     Active Substance: LISINOPRIL
  5. LEVOTHYROXIN [Concomitant]
     Active Substance: LEVOTHYROXINE
  6. CALCIUM [Concomitant]
     Active Substance: CALCIUM
  7. HUMIRA [Suspect]
     Active Substance: ADALIMUMAB
     Indication: PSORIASIS
     Route: 058
     Dates: start: 20180711
  8. PREDNISOLONE. [Concomitant]
     Active Substance: PREDNISOLONE
  9. ACETIC ACID. [Concomitant]
     Active Substance: ACETIC ACID
  10. ASPIRIN. [Concomitant]
     Active Substance: ASPIRIN
  11. POTASSIUM GLUCONATE [Concomitant]
     Active Substance: POTASSIUM GLUCONATE
  12. LORATADINE. [Concomitant]
     Active Substance: LORATADINE
  13. FUROSEMIDE. [Concomitant]
     Active Substance: FUROSEMIDE
  14. WARFARIN [Concomitant]
     Active Substance: WARFARIN
  15. CHOLECALCIFEROL [Concomitant]
     Active Substance: CHOLECALCIFEROL
  16. DILTIAZEM. [Concomitant]
     Active Substance: DILTIAZEM

REACTIONS (2)
  - Renal failure [None]
  - Pulmonary oedema [None]

NARRATIVE: CASE EVENT DATE: 20180806
